FAERS Safety Report 6791324-1 (Version None)
Quarter: 2010Q2

REPORT INFORMATION
  Report Type: 
  Country: None (occurrence: None)
  Receive Date: 20100624
  Receipt Date: 20090629
  Transmission Date: 20101027
  Serious: Yes (Disabling, Other)
  Sender: FDA-Public Use
  Company Number: US-BAYER-200910909NA

PATIENT
  Age: 54 Year
  Sex: Male
  Weight: 152 kg

DRUGS (30)
  1. MAGNEVIST [Suspect]
     Indication: NUCLEAR MAGNETIC RESONANCE IMAGING ABDOMINAL
     Dosage: TOTAL DAILY DOSE: 40 ML
     Route: 042
     Dates: start: 20030903, end: 20030903
  2. OMNISCAN [Suspect]
     Indication: NUCLEAR MAGNETIC RESONANCE IMAGING
  3. OPTIMARK [Suspect]
     Indication: NUCLEAR MAGNETIC RESONANCE IMAGING
  4. MULTIHANCE [Suspect]
     Indication: NUCLEAR MAGNETIC RESONANCE IMAGING
  5. PROHANCE [Suspect]
     Indication: NUCLEAR MAGNETIC RESONANCE IMAGING
  6. ACETAMINOPHEN [Concomitant]
     Indication: PAIN
  7. ASPIRIN [Concomitant]
  8. FISH OIL [Concomitant]
  9. PHOSLO [Concomitant]
     Indication: BLOOD PHOSPHORUS INCREASED
     Route: 048
  10. PLAVIX [Concomitant]
  11. RENAGEL [Concomitant]
     Dosage: UNIT DOSE: 800 MG
     Route: 048
  12. SENSIPAR [Concomitant]
  13. TOPROL-XL [Concomitant]
  14. VICODIN [Concomitant]
     Indication: PAIN
  15. ZOCOR [Concomitant]
  16. LANTUS [Concomitant]
  17. HUMULIN R [Concomitant]
  18. HUMALOG [Concomitant]
  19. ALLOPURINOL [Concomitant]
  20. FUROSEMIDE [Concomitant]
  21. TRICOR [Concomitant]
  22. TERAZOSIN [Concomitant]
  23. LISINOPRIL [Concomitant]
  24. METOPROLOL [Concomitant]
  25. EPOGEN [Concomitant]
     Indication: HAEMODIALYSIS
  26. ZEMPLAR [Concomitant]
     Indication: HYPERPARATHYROIDISM SECONDARY
  27. BENICAR [Concomitant]
  28. VERELAN [Concomitant]
  29. DIOVAN [Concomitant]
  30. VIAGRA [Concomitant]

REACTIONS (33)
  - ANHEDONIA [None]
  - ANXIETY [None]
  - ARTHRALGIA [None]
  - AZOTAEMIA [None]
  - BACK PAIN [None]
  - BALANCE DISORDER [None]
  - COORDINATION ABNORMAL [None]
  - EMOTIONAL DISTRESS [None]
  - FATIGUE [None]
  - FEELING ABNORMAL [None]
  - FIBROSIS [None]
  - GAIT DISTURBANCE [None]
  - GENERAL PHYSICAL HEALTH DETERIORATION [None]
  - HYPOAESTHESIA [None]
  - JOINT RANGE OF MOTION DECREASED [None]
  - JOINT SWELLING [None]
  - MUSCULAR WEAKNESS [None]
  - MUSCULOSKELETAL STIFFNESS [None]
  - NEPHROGENIC SYSTEMIC FIBROSIS [None]
  - OCULAR ICTERUS [None]
  - OEDEMA PERIPHERAL [None]
  - PAIN [None]
  - PARAESTHESIA [None]
  - PERONEAL NERVE PALSY [None]
  - PRURITUS [None]
  - QUALITY OF LIFE DECREASED [None]
  - RESTLESS LEGS SYNDROME [None]
  - SCAR [None]
  - SKIN DISCOLOURATION [None]
  - SKIN DISORDER [None]
  - SKIN HYPERTROPHY [None]
  - SKIN INDURATION [None]
  - SKIN TIGHTNESS [None]
